FAERS Safety Report 6554572-1 (Version None)
Quarter: 2010Q1

REPORT INFORMATION
  Report Type: 
  Country: None (occurrence: None)
  Receive Date: 20100127
  Receipt Date: 20100113
  Transmission Date: 20100710
  Serious: Yes (Hospitalization)
  Sender: FDA-Public Use
  Company Number: US-MYLANLABS-2010S1000631

PATIENT
  Age: 9 Year
  Sex: Female

DRUGS (3)
  1. CEFTRIAXONE [Suspect]
     Indication: MENINGOCOCCAL SEPSIS
     Route: 042
  2. IBUPROFEN [Suspect]
     Indication: MENINGOCOCCAL SEPSIS
     Route: 048
  3. PARACETAMOL [Suspect]
     Indication: MENINGOCOCCAL SEPSIS
     Route: 048

REACTIONS (11)
  - ABDOMINAL PAIN [None]
  - CYSTOSCOPY ABNORMAL [None]
  - HYDRONEPHROSIS [None]
  - HYDROURETER [None]
  - MENINGOCOCCAL SEPSIS [None]
  - RASH ERYTHEMATOUS [None]
  - RENAL FAILURE ACUTE [None]
  - RENAL PAPILLARY NECROSIS [None]
  - ULTRASOUND SCAN ABNORMAL [None]
  - URETERIC OBSTRUCTION [None]
  - VOMITING [None]
